FAERS Safety Report 20011324 (Version 2)
Quarter: 2021Q4

REPORT INFORMATION
  Report Type: Report from Study
  Country: US (occurrence: US)
  Receive Date: 20211029
  Receipt Date: 20211209
  Transmission Date: 20220303
  Serious: Yes (Hospitalization, Other)
  Sender: FDA-Public Use
  Company Number: US-TAIHO ONCOLOGY INC-EU-2021-03040

PATIENT
  Age: 52 Year
  Sex: Female
  Weight: 137.56 kg

DRUGS (3)
  1. LONSURF [Suspect]
     Active Substance: TIPIRACIL HYDROCHLORIDE\TRIFLURIDINE
     Indication: Colon cancer
     Dosage: CYCLE UNKNOWN
     Route: 048
     Dates: start: 20210830
  2. INSULIN NOS [Concomitant]
     Active Substance: INSULIN NOS
     Dosage: EVERY MORNING
  3. ARIPIPRAZOLE [Concomitant]
     Active Substance: ARIPIPRAZOLE

REACTIONS (5)
  - Dehydration [Unknown]
  - Nausea [Unknown]
  - Pericardial effusion [Unknown]
  - Salivary hypersecretion [Unknown]
  - Dry skin [Unknown]

NARRATIVE: CASE EVENT DATE: 20211001
